FAERS Safety Report 6805020-5 (Version None)
Quarter: 2010Q2

REPORT INFORMATION
  Report Type: 
  Country: None (occurrence: None)
  Receive Date: 20100628
  Receipt Date: 20070723
  Transmission Date: 20101027
  Serious: No
  Sender: FDA-Public Use
  Company Number: US-PFIZER INC-2007061469

PATIENT
  Sex: Female
  Weight: 75 kg

DRUGS (4)
  1. GEODON [Suspect]
     Indication: ELEVATED MOOD
  2. GEODON [Suspect]
     Indication: ANXIETY
  3. CYMBALTA [Suspect]
     Indication: DEPRESSION
     Dates: start: 20070101
  4. KLONOPIN [Concomitant]

REACTIONS (4)
  - DEPRESSION [None]
  - HYPERHIDROSIS [None]
  - MUSCLE TIGHTNESS [None]
  - NECK PAIN [None]
